APPROVED DRUG PRODUCT: BETA-HC
Active Ingredient: HYDROCORTISONE
Strength: 1%
Dosage Form/Route: LOTION;TOPICAL
Application: A089495 | Product #001
Applicant: BETA DERMACEUTICALS INC
Approved: Jan 25, 1988 | RLD: No | RS: No | Type: DISCN